FAERS Safety Report 13500346 (Version 1)
Quarter: 2017Q2

REPORT INFORMATION
  Report Type: Spontaneous
  Country: BR (occurrence: BR)
  Receive Date: 20170501
  Receipt Date: 20170501
  Transmission Date: 20170830
  Serious: Yes (Other)
  Sender: FDA-Public Use
  Company Number: BR-009507513-1705BRA000313

PATIENT
  Age: 63 Year
  Sex: Female
  Weight: 89 kg

DRUGS (6)
  1. JANUVIA [Suspect]
     Active Substance: SITAGLIPTIN PHOSPHATE
     Dosage: 100 MG ONCE A DAY (IN FASTING)
     Route: 048
  2. GLICLAZIDE [Concomitant]
     Active Substance: GLICLAZIDE
     Indication: TYPE 2 DIABETES MELLITUS
     Dosage: 30 MG - ONCE A DAY
     Route: 048
     Dates: start: 2014
  3. DIAMICRON MR [Concomitant]
     Active Substance: GLICLAZIDE
     Indication: TYPE 2 DIABETES MELLITUS
     Dosage: 60 MG - ONCE A DAY
     Route: 048
     Dates: start: 2012, end: 2014
  4. JANUVIA [Suspect]
     Active Substance: SITAGLIPTIN PHOSPHATE
     Dosage: 100 MG ONCE A DAY (IN FASTING)
     Route: 048
  5. JANUVIA [Suspect]
     Active Substance: SITAGLIPTIN PHOSPHATE
     Indication: TYPE 2 DIABETES MELLITUS
     Dosage: 100 MG ONCE A DAY (IN FASTING)
     Route: 048
     Dates: start: 2011
  6. GLIFAGE [Concomitant]
     Active Substance: METFORMIN HYDROCHLORIDE
     Indication: TYPE 2 DIABETES MELLITUS
     Dosage: 500 MG TWICE A DAY
     Route: 048

REACTIONS (10)
  - Blood pressure increased [Unknown]
  - Asthenia [Unknown]
  - Tremor [Unknown]
  - Spinal osteoarthritis [Unknown]
  - Alphaviral infection [Recovered/Resolved]
  - Abdominal pain upper [Not Recovered/Not Resolved]
  - Cervical spinal stenosis [Unknown]
  - Lethargy [Unknown]
  - Drug dose omission [Unknown]
  - Product quality issue [Unknown]

NARRATIVE: CASE EVENT DATE: 2015
